FAERS Safety Report 12647835 (Version 1)
Quarter: 2016Q3

REPORT INFORMATION
  Report Type: Spontaneous
  Country: US (occurrence: US)
  Receive Date: 20160812
  Receipt Date: 20160812
  Transmission Date: 20161109
  Serious: Yes (Hospitalization)
  Sender: FDA-Public Use
  Company Number: US-MYLANLABS-2016M1033557

PATIENT

DRUGS (19)
  1. TRAZODONE [Concomitant]
     Active Substance: TRAZODONE HYDROCHLORIDE
     Route: 065
  2. WARFARIN [Interacting]
     Active Substance: WARFARIN
     Dosage: 5MG DAILY, THEN INCREASED TO 7.5MG DAILY
     Route: 048
  3. WARFARIN [Interacting]
     Active Substance: WARFARIN
     Dosage: 12.5MG DAILY, REDUCED BACK TO 10MG DAILY
     Route: 048
  4. PARACETAMOL [Concomitant]
     Active Substance: ACETAMINOPHEN
     Route: 065
  5. FLUOXETINE [Concomitant]
     Active Substance: FLUOXETINE HYDROCHLORIDE
     Route: 065
  6. ATENOLOL. [Concomitant]
     Active Substance: ATENOLOL
     Route: 065
  7. MIRTAZAPINE. [Concomitant]
     Active Substance: MIRTAZAPINE
     Route: 065
  8. TRAMADOL. [Concomitant]
     Active Substance: TRAMADOL
     Route: 065
  9. WARFARIN [Suspect]
     Active Substance: WARFARIN
     Indication: DEEP VEIN THROMBOSIS
     Dosage: 10MG DAILY, THEN TITRATED TO 5MG DAILY
     Route: 048
  10. ESOMEPRAZOLE [Concomitant]
     Active Substance: ESOMEPRAZOLE
     Route: 065
  11. DULOXETINE. [Concomitant]
     Active Substance: DULOXETINE
     Route: 065
  12. WARFARIN [Interacting]
     Active Substance: WARFARIN
     Dosage: 7.5MG DAILY, THEN INCREASED TO 10MG DAILY
     Route: 048
  13. CIPROFLOXACIN. [Concomitant]
     Active Substance: CIPROFLOXACIN
     Route: 065
  14. METRONIDAZOLE. [Concomitant]
     Active Substance: METRONIDAZOLE
     Route: 065
  15. PHENYTOIN. [Interacting]
     Active Substance: PHENYTOIN
     Indication: SEIZURE
     Route: 048
  16. WARFARIN [Interacting]
     Active Substance: WARFARIN
     Dosage: 10MG DAILY, THEN INCREASED TO 15MG DAILY
     Route: 048
  17. WARFARIN [Interacting]
     Active Substance: WARFARIN
     Dosage: 15MG DAILY, REDUCED TO 12.5MG DAILY
     Route: 048
  18. ENOXAPARIN SODIUM. [Concomitant]
     Active Substance: ENOXAPARIN SODIUM
     Indication: DEEP VEIN THROMBOSIS
     Route: 058
  19. SERTRALINE [Concomitant]
     Active Substance: SERTRALINE HYDROCHLORIDE
     Route: 065

REACTIONS (7)
  - International normalised ratio increased [Recovered/Resolved]
  - Blood alkaline phosphatase increased [Unknown]
  - Gamma-glutamyltransferase abnormal [Unknown]
  - Labelled drug-drug interaction medication error [Unknown]
  - Alanine aminotransferase increased [Unknown]
  - Purple glove syndrome [Unknown]
  - Aspartate aminotransferase increased [Unknown]
